FAERS Safety Report 4392097-2 (Version None)
Quarter: 2004Q3

REPORT INFORMATION
  Report Type: 
  Country: None (occurrence: None)
  Receive Date: 20040702
  Receipt Date: 20040312
  Transmission Date: 20050211
  Serious: Yes (Other)
  Sender: FDA-Public Use
  Company Number: 2004UW04708

PATIENT
  Sex: Female

DRUGS (1)
  1. CRESTOR [Suspect]

REACTIONS (5)
  - APPETITE DISORDER [None]
  - ASTHENIA [None]
  - BALANCE DISORDER [None]
  - MEMORY IMPAIRMENT [None]
  - VISION BLURRED [None]
